FAERS Safety Report 9669441 (Version 3)
Quarter: 2014Q1

REPORT INFORMATION
  Report Type: Spontaneous
  Country: ES (occurrence: ES)
  Receive Date: 20131105
  Receipt Date: 20140205
  Transmission Date: 20141002
  Serious: Yes (Hospitalization, Other)
  Sender: FDA-Public Use
  Company Number: ES-JNJFOC-20131017983

PATIENT
  Age: 56 Year
  Sex: Female

DRUGS (4)
  1. REMICADE [Suspect]
     Indication: PSORIASIS
     Dosage: DAY 0, 15 AND 45
     Route: 042
     Dates: start: 20091202, end: 20100113
  2. DOGMATIL [Concomitant]
     Route: 048
  3. DIANBEN [Concomitant]
     Route: 048
  4. ADIRO [Concomitant]
     Route: 048

REACTIONS (1)
  - Disseminated tuberculosis [Recovered/Resolved]
